FAERS Safety Report 17911969 (Version 1)
Quarter: 2020Q2

REPORT INFORMATION
  Report Type: Spontaneous
  Country: PT (occurrence: PT)
  Receive Date: 20200618
  Receipt Date: 20200618
  Transmission Date: 20200714
  Serious: Yes (Death, Hospitalization, Other)
  Sender: FDA-Public Use
  Company Number: PT-ACCORD-185515

PATIENT
  Age: 60 Year
  Sex: Male

DRUGS (6)
  1. NIFEDIPINE. [Suspect]
     Active Substance: NIFEDIPINE
     Indication: PRODUCT USED FOR UNKNOWN INDICATION
     Dosage: 30 MG, QD
  2. FUROSEMIDE. [Suspect]
     Active Substance: FUROSEMIDE
     Indication: PRODUCT USED FOR UNKNOWN INDICATION
     Dosage: 120 MG, QD
     Route: 042
  3. DEFLAZACORT [Suspect]
     Active Substance: DEFLAZACORT
     Indication: PRODUCT USED FOR UNKNOWN INDICATION
     Dosage: 6 MG, QD
  4. METOLAZONE. [Suspect]
     Active Substance: METOLAZONE
     Indication: PRODUCT USED FOR UNKNOWN INDICATION
     Dosage: 2.5 MG, TID
  5. SPIRONOLACTONE. [Suspect]
     Active Substance: SPIRONOLACTONE
     Indication: PRODUCT USED FOR UNKNOWN INDICATION
     Dosage: 25 MG, QD
  6. FUROSEMIDE. [Suspect]
     Active Substance: FUROSEMIDE
     Indication: PRODUCT USED FOR UNKNOWN INDICATION
     Dosage: 40 MG, BID
     Route: 042

REACTIONS (16)
  - Crepitations [Unknown]
  - Tricuspid valve incompetence [Unknown]
  - Orthopnoea [Fatal]
  - Syncope [Fatal]
  - Dyspnoea [Fatal]
  - Cardiac failure chronic [Unknown]
  - Atrioventricular block complete [Unknown]
  - Myocardial fibrosis [Unknown]
  - Hypokinesia [Unknown]
  - Generalised oedema [Fatal]
  - Condition aggravated [Unknown]
  - Ventricular dysfunction [Unknown]
  - Oedema [Unknown]
  - Drug resistance [Unknown]
  - Acute pulmonary oedema [Unknown]
  - Brain natriuretic peptide increased [Unknown]
